FAERS Safety Report 7075062-6 (Version None)
Quarter: 2010Q4

REPORT INFORMATION
  Report Type: 
  Country: None (occurrence: None)
  Receive Date: 20101029
  Receipt Date: 20100408
  Transmission Date: 20110411
  Serious: No
  Sender: FDA-Public Use
  Company Number: US-WYE-H14420910

PATIENT
  Age: 32 Year
  Sex: Male

DRUGS (1)
  1. ALAVERT D-12 [Suspect]
     Dosage: UNKNOWN
     Route: 048

REACTIONS (1)
  - INSOMNIA [None]
